FAERS Safety Report 6573699-1 (Version None)
Quarter: 2010Q1

REPORT INFORMATION
  Report Type: 
  Country: None (occurrence: None)
  Receive Date: 20100208
  Receipt Date: 20100203
  Transmission Date: 20100710
  Serious: Yes (Hospitalization)
  Sender: FDA-Public Use
  Company Number: A0826881A

PATIENT
  Sex: Male
  Weight: 15.4 kg

DRUGS (2)
  1. AMOXIL [Suspect]
     Indication: TONSILLITIS
     Dosage: 5ML TWICE PER DAY
     Route: 048
     Dates: start: 20091113
  2. ZINNAT [Suspect]
     Indication: TONSILLITIS
     Dates: start: 20091120

REACTIONS (7)
  - ANAEMIA [None]
  - ANGIOEDEMA [None]
  - DRUG INEFFECTIVE [None]
  - DRUG INTERACTION [None]
  - LEUKOPENIA [None]
  - PYREXIA [None]
  - SKIN DISORDER [None]
